FAERS Safety Report 19450135 (Version 3)
Quarter: 2021Q3

REPORT INFORMATION
  Report Type: Report from Study
  Country: None (occurrence: JP)
  Receive Date: 20210622
  Receipt Date: 20210831
  Transmission Date: 20211014
  Serious: Yes (Hospitalization)
  Sender: FDA-Public Use
  Company Number: JP-ABBVIE-21K-087-3844531-00

PATIENT
  Age: 73 Year
  Sex: Male

DRUGS (2)
  1. DUODOPA [Suspect]
     Active Substance: CARBIDOPA\LEVODOPA
  2. DUODOPA [Suspect]
     Active Substance: CARBIDOPA\LEVODOPA
     Indication: PARKINSON^S DISEASE
     Route: 050
     Dates: start: 20210303, end: 2021

REACTIONS (7)
  - Fracture [Unknown]
  - Gait disturbance [Unknown]
  - Fall [Unknown]
  - On and off phenomenon [Not Recovered/Not Resolved]
  - Drug ineffective [Unknown]
  - Parkinsonian gait [Unknown]
  - Stoma site discharge [Unknown]

NARRATIVE: CASE EVENT DATE: 2021
